FAERS Safety Report 5777356-0 (Version None)
Quarter: 2008Q2

REPORT INFORMATION
  Report Type: 
  Country: None (occurrence: None)
  Receive Date: 20080601
  Receipt Date: 20080110
  Transmission Date: 20081010
  Serious: No
  Sender: FDA-Public Use
  Company Number: US200801002231

PATIENT
  Age: 76 Year
  Sex: Female

DRUGS (4)
  1. BYETTA [Suspect]
     Indication: TYPE 2 DIABETES MELLITUS
     Dosage: 5 UG, 2/D, SUBCUTANEOUS ; 5 UG, 2/D, SUBCUTANEOUS
     Route: 058
     Dates: start: 20070101, end: 20070101
  2. BYETTA [Suspect]
     Indication: TYPE 2 DIABETES MELLITUS
     Dosage: 5 UG, 2/D, SUBCUTANEOUS ; 5 UG, 2/D, SUBCUTANEOUS
     Route: 058
     Dates: start: 20080110
  3. ACTOS /USA/ (PIOGLITAZONE HYDROCHLORIDE) [Concomitant]
  4. DRUG USED IN DIABETES [Concomitant]

REACTIONS (2)
  - ORAL CANDIDIASIS [None]
  - ORAL PAIN [None]
